FAERS Safety Report 5345392-4 (Version None)
Quarter: 2007Q2

REPORT INFORMATION
  Report Type: 
  Country: None (occurrence: None)
  Receive Date: 20070601
  Receipt Date: 20070521
  Transmission Date: 20071010
  Serious: Yes (Other)
  Sender: FDA-Public Use
  Company Number: 07-001145

PATIENT
  Sex: Female

DRUGS (1)
  1. TACLONEX [Suspect]
     Dosage: UNK, UNK, TOPICAL
     Route: 061

REACTIONS (1)
  - CATARACT [None]
